FAERS Safety Report 9530781 (Version 2)
Quarter: 2013Q4

REPORT INFORMATION
  Report Type: Spontaneous
  Country: US (occurrence: US)
  Receive Date: 20130918
  Receipt Date: 20131211
  Transmission Date: 20140711
  Serious: Yes (Hospitalization, Other)
  Sender: FDA-Public Use
  Company Number: US-UCBSA-097525

PATIENT
  Sex: Male
  Weight: 80.9 kg

DRUGS (17)
  1. ISOSORBIDE MONONITRATE [Suspect]
     Indication: CORONARY ARTERY DILATATION
     Dosage: 30 MG
     Dates: start: 1998
  2. ISOSORBIDE MONONITRATE [Suspect]
     Indication: CORONARY ARTERY DILATATION
     Dosage: DAILY IN THE MORNING
  3. NEURONTIN [Suspect]
  4. PRAVASTATIN [Concomitant]
     Indication: BLOOD CHOLESTEROL
  5. NITROSTAT [Concomitant]
     Indication: CHEST PAIN
  6. XANAX [Concomitant]
     Indication: DEPRESSION
     Route: 048
  7. XANAX [Concomitant]
     Indication: ANXIETY
     Route: 048
  8. LUVOX CR [Concomitant]
     Indication: ELECTROLYTE IMBALANCE
     Dosage: EXTENDED RELEASE CAPSULES
     Route: 048
  9. LUVOX CR [Concomitant]
     Indication: OBSESSIVE-COMPULSIVE DISORDER
     Dosage: EXTENDED RELEASE CAPSULES
     Route: 048
  10. LUVOX CR [Concomitant]
     Indication: DEPRESSION
     Dosage: EXTENDED RELEASE CAPSULES
     Route: 048
  11. CYMBALTA [Concomitant]
     Indication: BACK PAIN
  12. CYMBALTA [Concomitant]
     Indication: DEPRESSION
  13. ZOLOFT [Concomitant]
     Indication: DEPRESSION
  14. LYRICA [Concomitant]
     Indication: NEUROPATHY PERIPHERAL
     Route: 048
     Dates: start: 2006
  15. LYRICA [Concomitant]
     Indication: BACK PAIN
     Route: 048
     Dates: start: 2006
  16. LYRICA [Concomitant]
     Indication: NEUROPATHY PERIPHERAL
     Route: 048
  17. LYRICA [Concomitant]
     Indication: BACK PAIN
     Route: 048

REACTIONS (9)
  - Gallbladder non-functioning [Unknown]
  - Prostate cancer [Unknown]
  - Prostatic specific antigen increased [Unknown]
  - Urinary incontinence [Unknown]
  - Spondylitis [Unknown]
  - Chest discomfort [Unknown]
  - Blood pressure decreased [Recovered/Resolved]
  - Malaise [Unknown]
  - Somnolence [Unknown]
